FAERS Safety Report 5815755-9 (Version None)
Quarter: 2008Q3

REPORT INFORMATION
  Report Type: 
  Country: None (occurrence: None)
  Receive Date: 20080721
  Receipt Date: 20080710
  Transmission Date: 20090109
  Serious: Yes (Hospitalization, Congenital Anomaly)
  Sender: FDA-Public Use
  Company Number: NL-NOVOPROD-275206

PATIENT
  Sex: Female
  Weight: 4.2 kg

DRUGS (3)
  1. NOVORAPID FLEXPEN [Suspect]
     Indication: MATERNAL DRUGS AFFECTING FOETUS
     Dosage: UNK, UNK
     Route: 064
  2. LEVEMIR [Suspect]
     Indication: MATERNAL DRUGS AFFECTING FOETUS
     Dosage: 40 IU, QD
     Route: 064
  3. LEVEMIR [Suspect]
     Dosage: 72 IU, QD
     Route: 058

REACTIONS (3)
  - ATRIAL SEPTAL DEFECT [None]
  - MACROSOMIA [None]
  - VENTRICULAR SEPTAL DEFECT [None]
